FAERS Safety Report 8382919 (Version 3)
Quarter: 2015Q1

REPORT INFORMATION
  Report Type: Report from Study
  Country: US (occurrence: US)
  Receive Date: 20120201
  Receipt Date: 20150303
  Transmission Date: 20150721
  Serious: Yes (Death, Other)
  Sender: FDA-Public Use
  Company Number: US-ROCHE-1034554

PATIENT
  Age: 45 Year
  Sex: Female
  Weight: 68 kg

DRUGS (16)
  1. DECADRON [Concomitant]
     Active Substance: DEXAMETHASONE
     Route: 042
  2. ANZEMET [Concomitant]
     Active Substance: DOLASETRON MESYLATE
     Route: 065
  3. ALAVERT ALLERGY [Concomitant]
     Active Substance: LORATADINE
     Route: 065
  4. CLARITIN [Concomitant]
     Active Substance: LORATADINE
  5. HERCEPTIN [Suspect]
     Active Substance: TRASTUZUMAB
     Indication: PRODUCT USED FOR UNKNOWN INDICATION
     Route: 042
     Dates: start: 20001215
  6. XELODA [Suspect]
     Active Substance: CAPECITABINE
     Indication: PRODUCT USED FOR UNKNOWN INDICATION
     Route: 065
  7. TAXOTERE [Concomitant]
     Active Substance: DOCETAXEL
     Route: 065
     Dates: start: 200101, end: 200109
  8. ATIVAN [Concomitant]
     Active Substance: LORAZEPAM
  9. ZOFRAN [Concomitant]
     Active Substance: ONDANSETRON HYDROCHLORIDE
  10. AVASTIN [Suspect]
     Active Substance: BEVACIZUMAB
     Indication: BREAST CANCER FEMALE
     Route: 042
     Dates: start: 20061201
  11. PROCRIT [Concomitant]
     Active Substance: ERYTHROPOIETIN
  12. ARIMIDEX [Concomitant]
     Active Substance: ANASTROZOLE
  13. LASIX [Concomitant]
     Active Substance: FUROSEMIDE
     Route: 042
  14. NAVELBINE [Concomitant]
     Active Substance: VINORELBINE TARTRATE
     Route: 065
     Dates: start: 20011010, end: 20040305
  15. GEMCITABINE [Concomitant]
     Active Substance: GEMCITABINE\GEMCITABINE HYDROCHLORIDE
     Route: 065
     Dates: end: 200503
  16. PREVACID [Concomitant]
     Active Substance: LANSOPRAZOLE

REACTIONS (14)
  - Carcinoembryonic antigen increased [Unknown]
  - Abdominal distension [Recovering/Resolving]
  - Disease progression [Unknown]
  - Abdominal pain lower [Recovering/Resolving]
  - Fatigue [Unknown]
  - Pruritus [Unknown]
  - Ascites [Unknown]
  - Death [Fatal]
  - Erythema [Unknown]
  - Vaginal haemorrhage [Unknown]
  - Oestradiol decreased [Unknown]
  - Microcytic anaemia [Unknown]
  - Oedema peripheral [Unknown]
  - Pleural effusion [Unknown]

NARRATIVE: CASE EVENT DATE: 20070112
